FAERS Safety Report 19745237 (Version 1)
Quarter: 2021Q3

REPORT INFORMATION
  Report Type: Spontaneous
  Country: US (occurrence: US)
  Receive Date: 20210824
  Receipt Date: 20210824
  Transmission Date: 20211014
  Serious: Yes (Hospitalization)
  Sender: FDA-Public Use
  Company Number: None

PATIENT
  Age: 65 Year
  Sex: Female
  Weight: 76.95 kg

DRUGS (21)
  1. TURMERIC [Concomitant]
     Active Substance: HERBALS\TURMERIC
  2. VITAMIN C [Concomitant]
     Active Substance: ASCORBIC ACID
  3. FUROSEMIDE. [Concomitant]
     Active Substance: FUROSEMIDE
  4. LEVOTHYROXINE. [Concomitant]
     Active Substance: LEVOTHYROXINE
  5. KCL ER [Concomitant]
  6. CAPECITABINE TABLETS [Suspect]
     Active Substance: CAPECITABINE
     Indication: BREAST CANCER FEMALE
     Dosage: OTHER FREQUENCY:BID 14 OF 21 DAYS;?
     Route: 048
  7. ASCORBIC ACID. [Concomitant]
     Active Substance: ASCORBIC ACID
  8. B?STRESS [Concomitant]
  9. COENZYME Q10 [Concomitant]
     Active Substance: DIETARY SUPPLEMENT\UBIDECARENONE
  10. ESOMEPRAZOLE. [Concomitant]
     Active Substance: ESOMEPRAZOLE MAGNESIUM
  11. HYDROMORPHONE [Concomitant]
     Active Substance: HYDROMORPHONE
  12. LETROZOLE. [Concomitant]
     Active Substance: LETROZOLE
  13. L?LYSINE [Concomitant]
     Active Substance: LYSINE
  14. VITAMIN D3 [Concomitant]
     Active Substance: CHOLECALCIFEROL
  15. CALCIUM CITRATE [Concomitant]
     Active Substance: CALCIUM CITRATE
  16. L?PROLINE [Concomitant]
  17. METAMUCIL [Concomitant]
     Active Substance: PLANTAGO SEED
  18. ZEAXANTHIN [Concomitant]
     Active Substance: ZEAXANTHIN
  19. MELOXICAM. [Concomitant]
     Active Substance: MELOXICAM
  20. ELIQUIS [Concomitant]
     Active Substance: APIXABAN
  21. OF CAP [Concomitant]

REACTIONS (4)
  - Blood urine present [None]
  - Haemorrhage [None]
  - Gait inability [None]
  - Hypophagia [None]

NARRATIVE: CASE EVENT DATE: 20210803
